FAERS Safety Report 5246494-3 (Version None)
Quarter: 2007Q1

REPORT INFORMATION
  Report Type: 
  Country: None (occurrence: None)
  Receive Date: 20070226
  Receipt Date: 20070222
  Transmission Date: 20070707
  Serious: Yes (Death, Other)
  Sender: FDA-Public Use
  Company Number: US-BRISTOL-MYERS SQUIBB COMPANY-13652441

PATIENT
  Age: 60 Year
  Sex: Female

DRUGS (1)
  1. COUMADIN [Suspect]
     Indication: DEEP VEIN THROMBOSIS
     Route: 048
     Dates: start: 20020901, end: 20050916

REACTIONS (2)
  - BREAST CANCER METASTATIC [None]
  - SUBDURAL HAEMATOMA [None]
